FAERS Safety Report 17774683 (Version 6)
Quarter: 2024Q1

REPORT INFORMATION
  Report Type: Report from Study
  Country: US (occurrence: US)
  Receive Date: 20200513
  Receipt Date: 20240215
  Transmission Date: 20240410
  Serious: Yes (Hospitalization, Other)
  Sender: FDA-Public Use
  Company Number: US-ACADIA PHARMACEUTICALS INC.-ACA-2019-015208

PATIENT
  Sex: Male

DRUGS (2)
  1. NUPLAZID [Suspect]
     Active Substance: PIMAVANSERIN TARTRATE
     Indication: Parkinson^s disease psychosis
     Dosage: 34 MILLIGRAM, QD
     Route: 048
     Dates: start: 201807, end: 201808
  2. NUPLAZID [Suspect]
     Active Substance: PIMAVANSERIN TARTRATE
     Dosage: 34 MG, QD
     Route: 048
     Dates: start: 20180811

REACTIONS (6)
  - Spinal operation [Unknown]
  - Urinary retention [Unknown]
  - Faecaloma [Unknown]
  - Urinary tract infection [Unknown]
  - Back injury [Unknown]
  - Constipation [Unknown]

NARRATIVE: CASE EVENT DATE: 20190101
